FAERS Safety Report 7708017-6 (Version None)
Quarter: 2011Q3

REPORT INFORMATION
  Report Type: 
  Country: None (occurrence: None)
  Receive Date: 20110824
  Receipt Date: 20110818
  Transmission Date: 20111222
  Serious: Yes (Death, Hospitalization)
  Sender: FDA-Public Use
  Company Number: US-CELGENEUS-163-21880-11080042

PATIENT
  Sex: Male

DRUGS (10)
  1. REVLIMID [Suspect]
     Dosage: 25 MILLIGRAM
     Route: 048
     Dates: start: 20110513
  2. METOPROLOL TARTRATE [Concomitant]
     Route: 065
  3. REVLIMID [Suspect]
     Dosage: 10 MILLIGRAM
     Route: 048
     Dates: start: 20110601
  4. COUMADIN [Concomitant]
     Route: 065
  5. ZOCOR [Concomitant]
     Route: 065
  6. CITALOPRAM HYDROBROMIDE [Concomitant]
     Route: 065
  7. AMBIEN [Concomitant]
     Route: 065
  8. XANAX [Concomitant]
     Route: 065
  9. DEXAMETHASONE [Concomitant]
     Route: 065
  10. SINGULAIR [Concomitant]
     Route: 065

REACTIONS (3)
  - HYPOTENSION [None]
  - DEATH [None]
  - INFECTION [None]
